FAERS Safety Report 6971865-4 (Version None)
Quarter: 2010Q3

REPORT INFORMATION
  Report Type: 
  Country: None (occurrence: None)
  Receive Date: 20100908
  Receipt Date: 20100908
  Transmission Date: 20110219
  Serious: Yes (Other)
  Sender: FDA-Public Use
  Company Number: None

PATIENT
  Age: 71 Year
  Sex: Female
  Weight: 65.9 kg

DRUGS (5)
  1. CLARINEX D 24 HOUR [Suspect]
     Dosage: 1 TABLET ONCE DAILY BY MOUTH
     Route: 048
     Dates: start: 20100805, end: 20100806
  2. CITALOPRAM HYDROBROMIDE [Concomitant]
  3. LEVOTHYROXINE SODIUM [Concomitant]
  4. LIPITOR [Concomitant]
  5. NASONEX [Concomitant]

REACTIONS (3)
  - HALLUCINATION [None]
  - PHOTOPSIA [None]
  - VISUAL IMPAIRMENT [None]
